FAERS Safety Report 11904879 (Version 1)
Quarter: 2016Q1

REPORT INFORMATION
  Report Type: Spontaneous
  Country: US (occurrence: US)
  Receive Date: 20160108
  Receipt Date: 20160108
  Transmission Date: 20160526
  Serious: No
  Sender: FDA-Public Use
  Company Number: US-ROCHE-1644622

PATIENT
  Age: 33 Year
  Sex: Male
  Weight: 113.05 kg

DRUGS (1)
  1. ACTIVASE [Suspect]
     Active Substance: ALTEPLASE
     Indication: ISCHAEMIC STROKE
     Route: 040

REACTIONS (2)
  - Drug administration error [Unknown]
  - No adverse event [Unknown]
